FAERS Safety Report 9687689 (Version 1)
Quarter: 2013Q4

REPORT INFORMATION
  Report Type: Spontaneous
  Country: US (occurrence: US)
  Receive Date: 20131114
  Receipt Date: 20131114
  Transmission Date: 20140711
  Serious: No
  Sender: FDA-Public Use
  Company Number: US-PFIZER INC-2013323381

PATIENT
  Age: 73 Year
  Sex: Female
  Weight: 72.11 kg

DRUGS (3)
  1. AMLODIPINE BESILATE [Suspect]
     Indication: HYPERTENSION
     Dosage: UNK
  2. ALPRAZOLAM [Concomitant]
     Indication: ANXIETY
     Dosage: UNK
  3. ALPRAZOLAM [Concomitant]
     Indication: PANIC ATTACK

REACTIONS (2)
  - Heart rate increased [Unknown]
  - Drug ineffective [Unknown]
